FAERS Safety Report 5671402-0 (Version None)
Quarter: 2008Q1

REPORT INFORMATION
  Report Type: 
  Country: None (occurrence: None)
  Receive Date: 20080318
  Receipt Date: 20080312
  Transmission Date: 20080703
  Serious: Yes (Hospitalization, Other)
  Sender: FDA-Public Use
  Company Number: US-PFIZER INC-2008022418

PATIENT
  Sex: Female
  Weight: 90.7 kg

DRUGS (2)
  1. BEXTRA [Suspect]
     Indication: ARTHRITIS
  2. BEXTRA [Suspect]
     Indication: PAIN

REACTIONS (3)
  - ANXIETY [None]
  - CARDIOVASCULAR DISORDER [None]
  - DEPRESSION [None]
